FAERS Safety Report 20606152 (Version 2)
Quarter: 2022Q1

REPORT INFORMATION
  Report Type: Spontaneous
  Country: SE (occurrence: SE)
  Receive Date: 20220317
  Receipt Date: 20220321
  Transmission Date: 20220423
  Serious: Yes (Hospitalization, Other)
  Sender: FDA-Public Use
  Company Number: SE-BoehringerIngelheim-2022-BI-159877

PATIENT
  Age: 52 Year
  Sex: Male
  Weight: 67 kg

DRUGS (4)
  1. JARDIANCE [Suspect]
     Active Substance: EMPAGLIFLOZIN
     Indication: Type 2 diabetes mellitus
     Dates: start: 20190105, end: 20201208
  2. JARDIANCE [Suspect]
     Active Substance: EMPAGLIFLOZIN
     Dates: start: 20201208, end: 20220301
  3. METFORMIN [Concomitant]
     Active Substance: METFORMIN HYDROCHLORIDE
     Indication: Product used for unknown indication
  4. OZEMPIC [Concomitant]
     Active Substance: SEMAGLUTIDE
     Indication: Product used for unknown indication

REACTIONS (2)
  - Diabetic ketoacidosis [Recovered/Resolved]
  - Gastroenteritis viral [Recovered/Resolved]

NARRATIVE: CASE EVENT DATE: 20220228
